FAERS Safety Report 5012529-6 (Version None)
Quarter: 2006Q2

REPORT INFORMATION
  Report Type: 
  Country: None (occurrence: None)
  Receive Date: 20060526
  Receipt Date: 20060517
  Transmission Date: 20061013
  Serious: Yes (Death, Life-Threatening)
  Sender: FDA-Public Use
  Company Number: US-MERCK-0605USA03752

PATIENT
  Age: 90 Year
  Sex: Male

DRUGS (1)
  1. INVANZ [Suspect]
     Indication: CHOLECYSTITIS
     Route: 042

REACTIONS (1)
  - VENTRICULAR TACHYCARDIA [None]
